FAERS Safety Report 9228650 (Version 1)
Quarter: 2013Q2

REPORT INFORMATION
  Report Type: Spontaneous
  Country: US (occurrence: US)
  Receive Date: 20130412
  Receipt Date: 20130412
  Transmission Date: 20140414
  Serious: Yes (Hospitalization)
  Sender: FDA-Public Use
  Company Number: US-BRISTOL-MYERS SQUIBB COMPANY-17111493

PATIENT
  Age: 84 Year
  Sex: Male

DRUGS (2)
  1. COUMADIN [Suspect]
     Indication: ATRIAL FIBRILLATION
     Dosage: INTER AND RESTARTED WITH 3MG/D ON 17OCT12
     Route: 048
     Dates: start: 201210
  2. AMIODARONE [Suspect]
     Route: 048

REACTIONS (2)
  - International normalised ratio increased [Unknown]
  - Gastroenteritis viral [Unknown]
